FAERS Safety Report 22173554 (Version 3)
Quarter: 2023Q2

REPORT INFORMATION
  Report Type: Spontaneous
  Country: LV (occurrence: LV)
  Receive Date: 20230404
  Receipt Date: 20230508
  Transmission Date: 20230721
  Serious: Yes (Death, Other)
  Sender: FDA-Public Use
  Company Number: LV-ALXN-A202304195

PATIENT
  Age: 36 Year
  Sex: Female

DRUGS (1)
  1. SOLIRIS [Suspect]
     Active Substance: ECULIZUMAB
     Indication: Atypical haemolytic uraemic syndrome
     Dosage: UNK UNK, SINGLE
     Route: 065

REACTIONS (3)
  - Shock haemorrhagic [Fatal]
  - Haemorrhage in pregnancy [Fatal]
  - Exposure during pregnancy [Unknown]

NARRATIVE: CASE EVENT DATE: 20230317
